FAERS Safety Report 6177623-5 (Version None)
Quarter: 2009Q2

REPORT INFORMATION
  Report Type: 
  Country: None (occurrence: None)
  Receive Date: 20090501
  Receipt Date: 20090501
  Transmission Date: 20091009
  Serious: No
  Sender: FDA-Public Use
  Company Number: None

PATIENT
  Age: 58 Year
  Sex: Male
  Weight: 74 kg

DRUGS (7)
  1. MORPHINE SULFATE [Suspect]
     Indication: PAIN
     Dosage: 15MG PO X 1
     Route: 048
     Dates: start: 20090312
  2. ATIVAN [Concomitant]
  3. PREVACID [Concomitant]
  4. TARKA [Concomitant]
  5. K DUR [Concomitant]
  6. ZOSYN [Concomitant]
  7. VORICONAZOLE [Concomitant]

REACTIONS (3)
  - BLOOD PRESSURE DIASTOLIC DECREASED [None]
  - OXYGEN SATURATION DECREASED [None]
  - SOMNOLENCE [None]
